FAERS Safety Report 20526699 (Version 1)
Quarter: 2022Q1

REPORT INFORMATION
  Report Type: Spontaneous
  Country: CN (occurrence: None)
  Receive Date: 20220228
  Receipt Date: 20220228
  Transmission Date: 20220424
  Serious: Yes (Other)
  Sender: FDA-Public Use
  Company Number: CN-ROCHE-3033435

PATIENT
  Age: 53 Year
  Sex: Female

DRUGS (36)
  1. MABTHERA [Suspect]
     Active Substance: RITUXIMAB
     Indication: Diffuse large B-cell lymphoma stage III
     Dosage: ON 20/APR/2020, 15/MAY/2020 AND 09/JUN/2020, R-CHOP REGIMEN
     Route: 065
  2. MABTHERA [Suspect]
     Active Substance: RITUXIMAB
     Dosage: R-CHOP REGIMEN
     Route: 065
     Dates: start: 20200722
  3. MABTHERA [Suspect]
     Active Substance: RITUXIMAB
     Dosage: R-CHOP REGIMEN
     Route: 065
     Dates: start: 20200821
  4. MABTHERA [Suspect]
     Active Substance: RITUXIMAB
     Dosage: ON 24 NOV 2020 AND 13 JAN 2021, BTKI INHIBITOR + R-HDMTX REGIMEN
     Route: 065
  5. MABTHERA [Suspect]
     Active Substance: RITUXIMAB
     Dosage: ON 28 JUN 2021 AND 03 AUG 2021, R-MA REGIMEN
     Route: 065
  6. MABTHERA [Suspect]
     Active Substance: RITUXIMAB
     Dosage: R-DHAP REGIMEN
     Route: 065
     Dates: start: 20210831
  7. MABTHERA [Suspect]
     Active Substance: RITUXIMAB
     Dosage: R-DHAP + R REGIMEN
     Route: 065
     Dates: start: 20210928
  8. MABTHERA [Suspect]
     Active Substance: RITUXIMAB
     Dosage: ON 26 OCT 2021 AND 17 NOV 2021, IR2-CHOP REGIMEN
     Route: 065
  9. CYCLOPHOSPHAMIDE [Concomitant]
     Active Substance: CYCLOPHOSPHAMIDE
     Indication: Diffuse large B-cell lymphoma stage III
     Dosage: R-CHOP REGIMEN
     Dates: start: 20200722
  10. CYCLOPHOSPHAMIDE [Concomitant]
     Active Substance: CYCLOPHOSPHAMIDE
     Dosage: R-CHOP REGIMEN
     Dates: start: 20200821
  11. CYCLOPHOSPHAMIDE [Concomitant]
     Active Substance: CYCLOPHOSPHAMIDE
     Dosage: ON 20 APR 2020, 15 MAY 2020 AND 09 JUN 2020, R-CHOP REGIMEN
  12. CYCLOPHOSPHAMIDE [Concomitant]
     Active Substance: CYCLOPHOSPHAMIDE
     Dosage: ON 26 OCT 2021 AND 17 NOV 2021, IR2-CHOP REGIMEN
  13. DOXORUBICIN [Concomitant]
     Active Substance: DOXORUBICIN
     Indication: Diffuse large B-cell lymphoma stage III
     Dosage: R-CHOP REGIMEN
     Dates: start: 20200722
  14. DOXORUBICIN [Concomitant]
     Active Substance: DOXORUBICIN
     Dosage: R-CHOP REGIMEN
     Dates: start: 20200821
  15. DOXORUBICIN [Concomitant]
     Active Substance: DOXORUBICIN
     Dosage: ON 20 APR 2020, 15 MAY 2020 AND 09 JUN 2020, R-CHOP REGIMEN
  16. DOXORUBICIN [Concomitant]
     Active Substance: DOXORUBICIN
     Dosage: ON 26 OCT 2021 AND 17 NOV 2021, IR2-CHOP REGIMEN
  17. VINCRISTINE [Concomitant]
     Active Substance: VINCRISTINE
     Indication: Diffuse large B-cell lymphoma stage III
     Dosage: R-CHOP REGIMEN
     Dates: start: 20200722
  18. VINCRISTINE [Concomitant]
     Active Substance: VINCRISTINE
     Dosage: R-CHOP REGIMEN
     Dates: start: 20200821
  19. VINCRISTINE [Concomitant]
     Active Substance: VINCRISTINE
     Dosage: ON 20 APR 2020, 15 MAY 2020 AND 09 JUN 2020, R-CHOP REGIMEN
  20. VINCRISTINE [Concomitant]
     Active Substance: VINCRISTINE
     Dosage: ON 26 OCT 2021 AND 17 NOV 2021, IR2-CHOP REGIMEN
  21. PREDNISONE [Concomitant]
     Active Substance: PREDNISONE
     Indication: Diffuse large B-cell lymphoma stage III
     Dosage: R-CHOP REGIMEN
     Dates: start: 20200722
  22. PREDNISONE [Concomitant]
     Active Substance: PREDNISONE
     Dosage: R-CHOP REGIMEN
     Dates: start: 20200821
  23. PREDNISONE [Concomitant]
     Active Substance: PREDNISONE
     Dosage: ON 20 APR 2020, 15 MAY 2020 AND 09 JUN 2020, R-CHOP REGIMEN
  24. PREDNISONE [Concomitant]
     Active Substance: PREDNISONE
     Dosage: ON 26 OCT 2021 AND 17 NOV 2021, IR2-CHOP REGIMEN
  25. METHOTREXATE [Concomitant]
     Active Substance: METHOTREXATE
     Indication: Diffuse large B-cell lymphoma stage III
     Dosage: ON 17 JUL 2020 AND 09 AUG 2020
  26. METHOTREXATE [Concomitant]
     Active Substance: METHOTREXATE
     Dosage: ON 24 NOV 2020 AND 13 JAN 2021, BTKI INHIBITOR + R-HDMTX REGIMEN
  27. METHOTREXATE [Concomitant]
     Active Substance: METHOTREXATE
     Dosage: ON 28 JUN 2021 AND 03 AUG 2021, R-MA REGIMEN
  28. CYTARABINE [Concomitant]
     Active Substance: CYTARABINE
     Indication: Diffuse large B-cell lymphoma stage III
     Dosage: R-DHAP REGIMEN
     Dates: start: 20210831
  29. CYTARABINE [Concomitant]
     Active Substance: CYTARABINE
     Dosage: R-DHAP + R REGIMEN
     Dates: start: 20210928
  30. CYTARABINE [Concomitant]
     Active Substance: CYTARABINE
     Dosage: ON 28 JUN 2021 AND 03 AUG 2021, R-MA REGIMEN
  31. CISPLATIN [Concomitant]
     Active Substance: CISPLATIN
     Indication: Diffuse large B-cell lymphoma stage III
     Dosage: R-DHAP REGIMEN
     Dates: start: 20210831
  32. CISPLATIN [Concomitant]
     Active Substance: CISPLATIN
     Dosage: R-DHAP + R REGIMEN
     Dates: start: 20210928
  33. DEXAMETHASONE [Concomitant]
     Active Substance: DEXAMETHASONE
     Indication: Diffuse large B-cell lymphoma stage III
     Dosage: R-DHAP REGIMEN
     Dates: start: 20210831
  34. DEXAMETHASONE [Concomitant]
     Active Substance: DEXAMETHASONE
     Dosage: R-DHAP + R REGIMEN
     Dates: start: 20210928
  35. LENALIDOMIDE [Concomitant]
     Active Substance: LENALIDOMIDE
     Indication: Diffuse large B-cell lymphoma stage III
     Dosage: R-DHAP + R REGIMEN
     Dates: start: 20210928
  36. IBRUTINIB [Concomitant]
     Active Substance: IBRUTINIB
     Indication: Diffuse large B-cell lymphoma stage III
     Dosage: ON 26 OCT 2021 AND 17 NOV 2021, IR2-CHOP REGIMEN

REACTIONS (10)
  - Head discomfort [Unknown]
  - Acute kidney injury [Unknown]
  - Diplopia [Unknown]
  - Visual impairment [Unknown]
  - Hypoaesthesia [Unknown]
  - Peripheral swelling [Unknown]
  - Muscular weakness [Unknown]
  - Hypoaesthesia [Unknown]
  - Gingival swelling [Unknown]
  - Altered state of consciousness [Unknown]

NARRATIVE: CASE EVENT DATE: 20200801
